FAERS Safety Report 5940635-8 (Version None)
Quarter: 2008Q4

REPORT INFORMATION
  Report Type: 
  Country: None (occurrence: None)
  Receive Date: 20081104
  Receipt Date: 20081031
  Transmission Date: 20090506
  Serious: Yes (Hospitalization)
  Sender: FDA-Public Use
  Company Number: US-ASTRAZENECA-2008UW24415

PATIENT
  Sex: Male

DRUGS (1)
  1. ATACAND [Suspect]
     Indication: CARDIAC FAILURE
     Route: 048
     Dates: start: 20081017

REACTIONS (3)
  - CARDIAC FAILURE [None]
  - INCREASED TENDENCY TO BRUISE [None]
  - SINUSITIS [None]
